FAERS Safety Report 18734145 (Version 1)
Quarter: 2021Q1

REPORT INFORMATION
  Report Type: Report from Study
  Country: EG (occurrence: EG)
  Receive Date: 20210113
  Receipt Date: 20210113
  Transmission Date: 20210419
  Serious: Yes (Other)
  Sender: FDA-Public Use
  Company Number: NVSC2020EG347137

PATIENT
  Age: 70 Year
  Sex: Female

DRUGS (2)
  1. LASILACTONE [Concomitant]
     Active Substance: FUROSEMIDE\SPIRONOLACTONE
     Indication: PRODUCT USED FOR UNKNOWN INDICATION
     Dosage: 1 DF (WHON RECOMMENDED 2 TABS/DAY, LONG TIME AGO)
     Route: 065
  2. GLIVEC [Suspect]
     Active Substance: IMATINIB MESYLATE
     Indication: CHRONIC MYELOID LEUKAEMIA
     Dosage: 400 MG, QD
     Route: 065

REACTIONS (8)
  - Movement disorder [Not Recovered/Not Resolved]
  - Dyspnoea [Recovered/Resolved]
  - Decreased appetite [Not Recovered/Not Resolved]
  - Generalised oedema [Recovered/Resolved]
  - Anaemia [Not Recovered/Not Resolved]
  - Hypertension [Recovered/Resolved]
  - Cytogenetic analysis abnormal [Not Recovered/Not Resolved]
  - Pruritus [Recovering/Resolving]

NARRATIVE: CASE EVENT DATE: 202005
